FAERS Safety Report 8846471 (Version 2)
Quarter: 2012Q4

REPORT INFORMATION
  Report Type: 
  Country: US (occurrence: US)
  Receive Date: 20121017
  Receipt Date: 20121128
  Transmission Date: 20130627
  Serious: Yes (Death)
  Sender: FDA-Public Use
  Company Number: US-PFIZER INC-2012257053

PATIENT
  Age: 56 Year
  Sex: Male
  Weight: 100 kg

DRUGS (3)
  1. LYRICA [Suspect]
     Indication: NERVE DAMAGE
     Dosage: 200 mg, 4x/day
     Route: 048
     Dates: start: 201111, end: 2012
  2. LYRICA [Suspect]
     Indication: NERVE DAMAGE
  3. ASPIRIN [Concomitant]
     Dosage: UNK

REACTIONS (3)
  - Bronchitis [Fatal]
  - Dyspnoea [Fatal]
  - Drug dose omission [Unknown]
